FAERS Safety Report 4903441-9 (Version None)
Quarter: 2006Q1

REPORT INFORMATION
  Report Type: 
  Country: None (occurrence: None)
  Receive Date: 20060203
  Receipt Date: 20060126
  Transmission Date: 20060701
  Serious: Yes (Death, Life-Threatening, Hospitalization)
  Sender: FDA-Public Use
  Company Number: 230008M05ESP

PATIENT
  Age: 19 Year
  Sex: Male

DRUGS (3)
  1. REBIF [Suspect]
     Indication: MULTIPLE SCLEROSIS
     Dosage: 44 MCG, 3 IN 1 WEEKS, SUBCUTANEOUS
     Route: 058
     Dates: start: 20030815, end: 20050701
  2. VALPROIC ACID [Suspect]
     Indication: EPILEPSY
  3. VALPROIC ACID [Concomitant]

REACTIONS (7)
  - COMA [None]
  - ENCEPHALOPATHY [None]
  - HEPATITIS FULMINANT [None]
  - HEPATOTOXICITY [None]
  - LOSS OF CONSCIOUSNESS [None]
  - RENAL FAILURE [None]
  - RHABDOMYOLYSIS [None]
